FAERS Safety Report 21071657 (Version 2)
Quarter: 2022Q3

REPORT INFORMATION
  Report Type: Spontaneous
  Country: US (occurrence: US)
  Receive Date: 20220712
  Receipt Date: 20220922
  Transmission Date: 20221026
  Serious: No
  Sender: FDA-Public Use
  Company Number: US-BRISTOL-MYERS SQUIBB COMPANY-2022-072383

PATIENT
  Age: 81 Year
  Sex: Female

DRUGS (1)
  1. POMALYST [Suspect]
     Active Substance: POMALIDOMIDE
     Indication: Plasma cell myeloma
     Dosage: LOT NUMBER: C2506A, EXPIRY DATE: 31-OCT-2025
     Route: 048
     Dates: start: 20220216

REACTIONS (5)
  - Cough [Unknown]
  - Pain [Unknown]
  - Tremor [Unknown]
  - Headache [Unknown]
  - Ear pain [Unknown]
